FAERS Safety Report 7161805-X (Version None)
Quarter: 2010Q4

REPORT INFORMATION
  Report Type: 
  Country: None (occurrence: None)
  Receive Date: 20101215
  Receipt Date: 20101208
  Transmission Date: 20110411
  Serious: Yes (Other)
  Sender: FDA-Public Use
  Company Number: IE-BRACCO-000077

PATIENT
  Age: 47 Year
  Sex: Male

DRUGS (1)
  1. NIOPAM [Suspect]
     Indication: ANGIOGRAM
     Dates: start: 20101117, end: 20101117

REACTIONS (4)
  - AGITATION [None]
  - COUGH [None]
  - FLUSHING [None]
  - RASH [None]
